FAERS Safety Report 25823913 (Version 1)
Quarter: 2025Q3

REPORT INFORMATION
  Report Type: Spontaneous
  Country: US (occurrence: None)
  Receive Date: 20250919
  Receipt Date: 20250919
  Transmission Date: 20251021
  Serious: No
  Sender: FDA-CTU
  Company Number: None

PATIENT
  Sex: Female

DRUGS (7)
  1. SYNTHROID [Suspect]
     Active Substance: LEVOTHYROXINE SODIUM
     Indication: Hypothyroidism
  2. LEVOTHYROXINE [Suspect]
     Active Substance: LEVOTHYROXINE
  3. LEVOXYL [Suspect]
     Active Substance: LEVOTHYROXINE SODIUM
  4. TIROSINT [Suspect]
     Active Substance: LEVOTHYROXINE SODIUM
  5. NP THYROID [Concomitant]
     Active Substance: LEVOTHYROXINE\LIOTHYRONINE
  6. VITAMIN D3 [Concomitant]
     Active Substance: CHOLECALCIFEROL
  7. BOUNTY PROBIOTIC [Concomitant]

REACTIONS (5)
  - Asthenia [None]
  - Asthenia [None]
  - Dizziness [None]
  - Abdominal pain [None]
  - Inappropriate thyroid stimulating hormone secretion [None]
